FAERS Safety Report 8462207-6 (Version None)
Quarter: 2012Q2

REPORT INFORMATION
  Report Type: 
  Country: None (occurrence: None)
  Receive Date: 20120625
  Receipt Date: 20120620
  Transmission Date: 20120825
  Serious: Yes (Death, Other)
  Sender: FDA-Public Use
  Company Number: PHHY2011JP34317

PATIENT
  Age: 56 Year
  Sex: Male

DRUGS (1)
  1. AFINITOR [Suspect]
     Indication: METASTATIC RENAL CELL CARCINOMA
     Dosage: 10 MG, DAILY
     Route: 048
     Dates: start: 20100817, end: 20110331

REACTIONS (4)
  - NEOPLASM PROGRESSION [None]
  - HAEMOGLOBIN DECREASED [None]
  - HYPERAMYLASAEMIA [None]
  - NEOPLASM MALIGNANT [None]
